FAERS Safety Report 14692947 (Version 2)
Quarter: 2018Q2

REPORT INFORMATION
  Report Type: Report from Study
  Country: US (occurrence: US)
  Receive Date: 20180329
  Receipt Date: 20180619
  Transmission Date: 20180711
  Serious: Yes (Other)
  Sender: FDA-Public Use
  Company Number: US-ROCHE-2094952

PATIENT
  Sex: Male
  Weight: 64 kg

DRUGS (9)
  1. GUANFACINE. [Concomitant]
     Active Substance: GUANFACINE
     Dosage: UNKNOWN DOSE
     Route: 065
  2. NUTROPIN AQ [Suspect]
     Active Substance: SOMATROPIN
     Route: 058
  3. DIVALPROEX SODIUM. [Concomitant]
     Active Substance: DIVALPROEX SODIUM
  4. PROZAC [Concomitant]
     Active Substance: FLUOXETINE HYDROCHLORIDE
  5. TOPAMAX [Concomitant]
     Active Substance: TOPIRAMATE
     Route: 065
  6. NORDITROPIN [Concomitant]
     Active Substance: SOMATROPIN
  7. DEPAKOTE [Concomitant]
     Active Substance: DIVALPROEX SODIUM
     Route: 065
  8. NUTROPIN AQ [Suspect]
     Active Substance: SOMATROPIN
     Route: 058
  9. NUTROPIN AQ [Suspect]
     Active Substance: SOMATROPIN
     Indication: PRADER-WILLI SYNDROME
     Route: 058
     Dates: start: 2014

REACTIONS (8)
  - Aggression [Unknown]
  - Blood cholesterol increased [Unknown]
  - Low density lipoprotein increased [Unknown]
  - Off label use [Unknown]
  - Blood testosterone decreased [Unknown]
  - Intentional product use issue [Unknown]
  - Blood follicle stimulating hormone increased [Unknown]
  - Ill-defined disorder [Unknown]
